FAERS Safety Report 7358906-X (Version None)
Quarter: 2011Q1

REPORT INFORMATION
  Report Type: 
  Country: None (occurrence: None)
  Receive Date: 20110317
  Receipt Date: 20110304
  Transmission Date: 20110831
  Serious: Yes (Hospitalization)
  Sender: FDA-Public Use
  Company Number: US-WATSON-2011-03175

PATIENT
  Age: 20 Year
  Sex: Male
  Weight: 72 kg

DRUGS (10)
  1. TACROLIMUS [Suspect]
     Dosage: 5 MG, BID
  2. TACROLIMUS [Suspect]
     Dosage: 2.5 MG  (0.035 MG/KG)
  3. TACROLIMUS [Suspect]
     Dosage: 4 MG (0.055 MG/KG)
  4. NICARDIPINE HCL [Suspect]
     Dosage: 3 UG/KG/MIN (13 MG/HR)
     Route: 042
  5. NICARDIPINE HCL [Suspect]
     Indication: HYPERTENSION
     Dosage: 1 UG/KG/MIN
     Route: 042
  6. TACROLIMUS [Suspect]
     Indication: IMMUNOSUPPRESSION
     Dosage: 5 MG (0.07 MG/KG)
  7. MYCOPHENOLATE MOFETIL [Concomitant]
     Indication: PRODUCT USED FOR UNKNOWN INDICATION
  8. PREDNISONE TAB [Concomitant]
     Indication: PRODUCT USED FOR UNKNOWN INDICATION
  9. NIFEDIPINE [Concomitant]
     Indication: PRODUCT USED FOR UNKNOWN INDICATION
     Dosage: 60 MG, UNK
  10. LABETALOL HCL [Concomitant]
     Indication: PRODUCT USED FOR UNKNOWN INDICATION
     Dosage: 300 MG, UNK
     Route: 042

REACTIONS (3)
  - URINE OUTPUT DECREASED [None]
  - DRUG LEVEL INCREASED [None]
  - DRUG INTERACTION [None]
